FAERS Safety Report 5774926-0 (Version None)
Quarter: 2008Q2

REPORT INFORMATION
  Report Type: 
  Country: None (occurrence: None)
  Receive Date: 20080617
  Receipt Date: 20080605
  Transmission Date: 20081010
  Serious: Yes (Other)
  Sender: FDA-Public Use
  Company Number: US-ROCHE-512846

PATIENT
  Sex: Male
  Weight: 70.3 kg

DRUGS (1)
  1. ACCUTANE [Suspect]
     Indication: ACNE
     Dosage: PATIENT REFILLED RX APPROXIMATELY 2 TIMES
     Route: 048
     Dates: start: 19920521, end: 19921031

REACTIONS (13)
  - ANXIETY [None]
  - DEPRESSION [None]
  - ECZEMA [None]
  - EMOTIONAL DISORDER [None]
  - FEAR [None]
  - HAEMORRHOIDAL HAEMORRHAGE [None]
  - ILEITIS [None]
  - ILIOTIBIAL BAND SYNDROME [None]
  - INGUINAL HERNIA [None]
  - IRRITABLE BOWEL SYNDROME [None]
  - MELANOCYTIC NAEVUS [None]
  - PANIC ATTACK [None]
  - STRESS FRACTURE [None]
